FAERS Safety Report 5379357-3 (Version None)
Quarter: 2007Q3

REPORT INFORMATION
  Report Type: 
  Country: None (occurrence: None)
  Receive Date: 20070702
  Receipt Date: 20070625
  Transmission Date: 20080115
  Serious: Yes (Other)
  Sender: FDA-Public Use
  Company Number: 2007SP002662

PATIENT
  Age: 39 Year
  Sex: Male

DRUGS (2)
  1. PEG-INTRON [Suspect]
     Indication: HEPATITIS C
     Dosage: SC
     Route: 058
     Dates: start: 20061201
  2. REBETOL [Suspect]
     Indication: HEPATITIS C
     Dosage: PO
     Route: 048
     Dates: start: 20061201

REACTIONS (10)
  - ABNORMAL BEHAVIOUR [None]
  - AGGRESSION [None]
  - ALCOHOL USE [None]
  - DEHYDRATION [None]
  - DEPRESSION [None]
  - HEPATIC ENZYME ABNORMAL [None]
  - IRRITABILITY [None]
  - NO THERAPEUTIC RESPONSE [None]
  - SPEECH DISORDER [None]
  - VOMITING [None]
